FAERS Safety Report 6047102-4 (Version None)
Quarter: 2009Q1

REPORT INFORMATION
  Report Type: 
  Country: None (occurrence: None)
  Receive Date: 20090122
  Receipt Date: 20090112
  Transmission Date: 20090719
  Serious: Yes (Hospitalization, Other)
  Sender: FDA-Public Use
  Company Number: US-AVENTIS-200910354US

PATIENT
  Sex: Female

DRUGS (4)
  1. AMARYL [Suspect]
     Dates: start: 20071101
  2. CARDIOVASCULAR SYSTEM DRUGS [Concomitant]
     Dosage: DOSE: UNK
  3. NEXIUM [Concomitant]
     Dosage: DOSE: UNK
  4. SIMVASTATIN [Concomitant]
     Dosage: DOSE: UNK

REACTIONS (2)
  - FALL [None]
  - UPPER LIMB FRACTURE [None]
